FAERS Safety Report 10450612 (Version 1)
Quarter: 2014Q3

REPORT INFORMATION
  Report Type: Spontaneous
  Country: CH (occurrence: CH)
  Receive Date: 20140912
  Receipt Date: 20140912
  Transmission Date: 20150326
  Serious: Yes (Death, Other)
  Sender: FDA-Public Use
  Company Number: CH-OTSUKA-US-2014-12877

PATIENT

DRUGS (3)
  1. MYCOPHENOLATE MOFETIL. [Concomitant]
     Active Substance: MYCOPHENOLATE MOFETIL
     Indication: PROPHYLAXIS AGAINST GRAFT VERSUS HOST DISEASE
     Dosage: 1200 MG/M2, BID
     Route: 065
  2. BUSULFEX [Suspect]
     Active Substance: BUSULFAN
     Indication: BONE MARROW TRANSPLANT
     Dosage: 6.5 MG/KG, UNKNOWN
     Route: 042
  3. ALEMTUZUMAB [Suspect]
     Active Substance: ALEMTUZUMAB
     Indication: BONE MARROW TRANSPLANT
     Dosage: 0.3 MG/KG, UNKNOWN
     Route: 065

REACTIONS (2)
  - Shock haemorrhagic [Fatal]
  - Transplant failure [Unknown]
